FAERS Safety Report 24189516 (Version 1)
Quarter: 2024Q3

REPORT INFORMATION
  Report Type: Spontaneous
  Country: CA (occurrence: CA)
  Receive Date: 20240808
  Receipt Date: 20240808
  Transmission Date: 20241017
  Serious: Yes (Other)
  Sender: PFIZER
  Company Number: CA-PFIZER INC-202400231288

PATIENT
  Sex: Male

DRUGS (18)
  1. LINEZOLID [Suspect]
     Active Substance: LINEZOLID
     Indication: Mycobacterium fortuitum infection
     Dosage: 600 MG, 1X/DAY
     Route: 065
  2. LINEZOLID [Suspect]
     Active Substance: LINEZOLID
     Indication: Arthritis infective
  3. RIFABUTIN [Suspect]
     Active Substance: RIFABUTIN
     Dosage: UNK
     Route: 065
  4. TIGECYCLINE [Suspect]
     Active Substance: TIGECYCLINE
     Dosage: UNK
     Route: 065
  5. AMIKACIN [Suspect]
     Active Substance: AMIKACIN
     Indication: Mycobacterium fortuitum infection
     Dosage: UNK, 1 EVERY 3 WEEKS
     Route: 065
  6. AMIKACIN [Suspect]
     Active Substance: AMIKACIN
     Indication: Arthritis infective
     Dosage: UNK, 1X/DAY
     Route: 065
  7. CEFOXITIN [Suspect]
     Active Substance: CEFOXITIN SODIUM
     Route: 065
  8. CIPROFLOXACIN [Suspect]
     Active Substance: CIPROFLOXACIN
     Route: 065
  9. DOXYCYCLINE [Suspect]
     Active Substance: DOXYCYCLINE\DOXYCYCLINE HYCLATE
     Route: 065
  10. ETHAMBUTOL [Suspect]
     Active Substance: ETHAMBUTOL HYDROCHLORIDE
     Route: 065
  11. IMIPENEM [Suspect]
     Active Substance: IMIPENEM
     Indication: Mycobacterium fortuitum infection
     Dosage: UNK, 3X/DAY
  12. IMIPENEM [Suspect]
     Active Substance: IMIPENEM
     Indication: Arthritis infective
  13. MOXIFLOXACIN [Suspect]
     Active Substance: MOXIFLOXACIN
     Indication: Mycobacterium fortuitum infection
     Dosage: 400 MG, 1X/DAY
  14. MOXIFLOXACIN [Suspect]
     Active Substance: MOXIFLOXACIN
     Indication: Arthritis infective
  15. AZITHROMYCIN ANHYDROUS [Suspect]
     Active Substance: AZITHROMYCIN ANHYDROUS
     Route: 065
  16. RIFAMPIN [Suspect]
     Active Substance: RIFAMPIN
     Route: 065
  17. SEPTRA [Suspect]
     Active Substance: SULFAMETHOXAZOLE\TRIMETHOPRIM
     Route: 065
  18. SULFAMETHOXAZOLE [Suspect]
     Active Substance: SULFAMETHOXAZOLE
     Route: 065

REACTIONS (6)
  - Bronchiectasis [Unknown]
  - Condition aggravated [Unknown]
  - Haemoptysis [Unknown]
  - Ototoxicity [Unknown]
  - Pulmonary mass [Unknown]
  - Off label use [Unknown]
